FAERS Safety Report 4712596-0 (Version None)
Quarter: 2005Q3

REPORT INFORMATION
  Report Type: 
  Country: None (occurrence: None)
  Receive Date: 20050711
  Receipt Date: 20050629
  Transmission Date: 20060218
  Serious: Yes (Hospitalization, Congenital Anomaly)
  Sender: FDA-Public Use
  Company Number: 033-1343-M0100058

PATIENT
  Age: 1 Day
  Sex: Male
  Weight: 4 kg

DRUGS (7)
  1. VIRACEPT [Suspect]
     Indication: HIV INFECTION
     Dosage: 750 MG TID, ORAL, GESTATION WEEK 34
     Route: 048
  2. COMBIVIR [Suspect]
     Indication: HIV INFECTION
     Dosage: ORAL, GESTATION WEEK 32
     Route: 048
  3. RETROVIR [Suspect]
     Indication: HIV INFECTION
     Dosage: DOSE, PLACE
     Dates: start: 20000518, end: 20000518
  4. VIRAMUNE [Suspect]
     Indication: HIV INFECTION
     Dosage: 1 DOSE OF NEVIRAPINE (STUDY
     Dates: start: 20000518, end: 20000518
  5. RETROVIR [Suspect]
     Indication: INFECTION PROPHYLAXIS
     Dosage: ORAL
     Route: 048
     Dates: start: 20000501, end: 20000701
  6. BLINDED THERAPY (BLINDED THERAPY) [Suspect]
     Indication: INFECTION PROPHYLAXIS
     Dosage: 1 DOSE OF NEVIRAPINE OR
     Dates: start: 20000521, end: 20000521
  7. GYNO-PEVARYL (ECONAZOLE NITRATE) [Concomitant]

REACTIONS (11)
  - BLOOD CREATINE PHOSPHOKINASE INCREASED [None]
  - BLOOD LACTIC ACID INCREASED [None]
  - BLOOD PYRUVIC ACID INCREASED [None]
  - BLOOD TRIGLYCERIDES INCREASED [None]
  - CAESAREAN SECTION [None]
  - DRUG EXPOSURE DURING PREGNANCY [None]
  - GASTROOESOPHAGEAL REFLUX DISEASE [None]
  - KETOSIS [None]
  - MACROCYTOSIS [None]
  - NEUTROPENIA NEONATAL [None]
  - SPEECH DISORDER [None]
